FAERS Safety Report 26045885 (Version 1)
Quarter: 2025Q4

REPORT INFORMATION
  Report Type: Spontaneous
  Country: AU (occurrence: AU)
  Receive Date: 20251114
  Receipt Date: 20251114
  Transmission Date: 20260118
  Serious: Yes (Other)
  Sender: RANBAXY
  Company Number: AU-SUN PHARMACEUTICAL INDUSTRIES LTD-2025R1-536029

PATIENT
  Age: 57 Year
  Sex: Female

DRUGS (6)
  1. LENALIDOMIDE [Suspect]
     Active Substance: LENALIDOMIDE
     Indication: Follicular lymphoma
     Dosage: 20 MILLIGRAM
     Route: 065
     Dates: start: 20230301, end: 20230726
  2. PROGESTERONE [Suspect]
     Active Substance: PROGESTERONE
     Indication: Hormone replacement therapy
     Dosage: 100 MILLIGRAM
     Route: 048
     Dates: start: 20250130
  3. ESTRADIOL [Suspect]
     Active Substance: ESTRADIOL
     Indication: Hormone replacement therapy
     Dosage: UNK
     Route: 062
     Dates: start: 20250130
  4. OBINUTUZUMAB [Suspect]
     Active Substance: OBINUTUZUMAB
     Indication: Follicular lymphoma
     Dosage: 1000 MILLIGRAM
     Route: 042
     Dates: start: 20230201, end: 20250612
  5. VENETOCLAX [Suspect]
     Active Substance: VENETOCLAX
     Indication: Follicular lymphoma
     Dosage: 800 MILLIGRAM
     Route: 065
     Dates: start: 20230201, end: 20230802
  6. TESTOSTERONE [Concomitant]
     Active Substance: TESTOSTERONE
     Indication: Hormone replacement therapy
     Dosage: 0.5 MILLIGRAM
     Route: 061
     Dates: start: 20250424

REACTIONS (1)
  - Squamous cell breast carcinoma [Not Recovered/Not Resolved]

NARRATIVE: CASE EVENT DATE: 20250826
